FAERS Safety Report 13908415 (Version 2)
Quarter: 2017Q3

REPORT INFORMATION
  Report Type: Spontaneous
  Country: US (occurrence: US)
  Receive Date: 20170826
  Receipt Date: 20170928
  Transmission Date: 20171127
  Serious: Yes (Hospitalization, Other)
  Sender: FDA-Public Use
  Company Number: US-AMGEN-USASP2017126344

PATIENT
  Age: 80 Year
  Sex: Female

DRUGS (11)
  1. PROLIA [Suspect]
     Active Substance: DENOSUMAB
     Indication: OSTEOPOROSIS POSTMENOPAUSAL
     Dosage: 60 MG, Q6MO
     Route: 065
  2. AMLODIPINE [Concomitant]
     Active Substance: AMLODIPINE BESYLATE
     Dosage: 2.5 MG, QD
  3. METOPROLOL. [Concomitant]
     Active Substance: METOPROLOL
     Dosage: 25 MG HALF BID
  4. PROLIA [Suspect]
     Active Substance: DENOSUMAB
     Indication: ARTHRITIS
  5. CALCIUM [Concomitant]
     Active Substance: CALCIUM
     Dosage: UNK BID
  6. PEPCID [Concomitant]
     Active Substance: FAMOTIDINE
     Dosage: 20 MG, UNK
  7. VITAMIN B3 [Concomitant]
     Active Substance: NIACIN
     Dosage: UNK
  8. ELECTROLYTES NOS [Concomitant]
     Active Substance: ELECTROLYTES NOS
     Dosage: UNK
  9. ATORVASTATIN [Concomitant]
     Active Substance: ATORVASTATIN
     Indication: BLOOD CHOLESTEROL INCREASED
     Dosage: UNK UNK, QD
  10. VITAMIN D3 [Concomitant]
     Active Substance: CHOLECALCIFEROL
     Dosage: 800 IU, UNK
  11. VITAMIN B COMPLEX [Concomitant]
     Active Substance: CYANOCOBALAMIN\DEXPANTHENOL\NIACINAMIDE\PYRIDOXINE HYDROCHLORIDE\RIBOFLAVIN 5^-PHOSPHATE SODIUM\THIAMINE HYDROCHLORIDE\VITAMIN B COMPLEX
     Dosage: 500 UNK, UNK

REACTIONS (15)
  - Blood pressure decreased [Unknown]
  - Inappropriate schedule of drug administration [Unknown]
  - Erythema [Recovering/Resolving]
  - Pollakiuria [Recovering/Resolving]
  - Trigger finger [Recovering/Resolving]
  - Off label use [Unknown]
  - Peripheral swelling [Recovering/Resolving]
  - Dizziness [Unknown]
  - Neck surgery [Unknown]
  - Gout [Recovering/Resolving]
  - Muscle spasms [Recovering/Resolving]
  - Spinal operation [Unknown]
  - Hypoaesthesia [Unknown]
  - Pain [Recovering/Resolving]
  - Skin discolouration [Recovering/Resolving]

NARRATIVE: CASE EVENT DATE: 2014
